FAERS Safety Report 23946960 (Version 1)
Quarter: 2024Q2

REPORT INFORMATION
  Report Type: Spontaneous
  Country: IT (occurrence: IT)
  Receive Date: 20240606
  Receipt Date: 20240606
  Transmission Date: 20240716
  Serious: Yes (Other)
  Sender: FDA-Public Use
  Company Number: None

PATIENT
  Age: 73 Year
  Sex: Male

DRUGS (1)
  1. ULTRAVIST [Suspect]
     Active Substance: IOPROMIDE
     Indication: Computerised tomogram abdomen
     Dosage: 370 MG/ML
     Route: 042
     Dates: start: 20240518, end: 20240518

REACTIONS (1)
  - Upper respiratory tract irritation [Recovered/Resolved]

NARRATIVE: CASE EVENT DATE: 20240518
